FAERS Safety Report 13369353 (Version 1)
Quarter: 2017Q1

REPORT INFORMATION
  Report Type: Spontaneous
  Country: US (occurrence: US)
  Receive Date: 20170324
  Receipt Date: 20170324
  Transmission Date: 20170429
  Serious: Yes (Other)
  Sender: FDA-Public Use
  Company Number: None

PATIENT
  Age: 72 Year
  Sex: Female
  Weight: 55.8 kg

DRUGS (4)
  1. D-3 [Concomitant]
     Active Substance: CHOLECALCIFEROL
  2. LEVOTHYROXINE. [Concomitant]
     Active Substance: LEVOTHYROXINE
  3. FORTEO [Suspect]
     Active Substance: TERIPARATIDE
     Indication: OSTEOPOROSIS
     Dosage: ?          OTHER STRENGTH:20 MCG PER DOSE;QUANTITY:1 INJECTION(S);OTHER ROUTE:INJECTION?
     Dates: start: 20160301, end: 20170301
  4. FORTEO [Concomitant]
     Active Substance: TERIPARATIDE

REACTIONS (3)
  - Muscle spasms [None]
  - Sleep disorder due to general medical condition, insomnia type [None]
  - Arthralgia [None]

NARRATIVE: CASE EVENT DATE: 20170301
